FAERS Safety Report 4610733-X (Version None)
Quarter: 2005Q2

REPORT INFORMATION
  Report Type: 
  Country: None (occurrence: None)
  Receive Date: 20050301
  Receipt Date: 20041119
  Transmission Date: 20051028
  Serious: No
  Sender: FDA-Public Use
  Company Number: WAES 0411USA03347

PATIENT
  Age: 48 Year
  Sex: Male

DRUGS (3)
  1. ZETIA [Suspect]
     Dosage: 10 MG/PO
     Route: 048
  2. LIPITOR [Concomitant]
  3. SINGULAIR [Concomitant]

REACTIONS (1)
  - PRURITUS [None]
